FAERS Safety Report 7396259-1 (Version None)
Quarter: 2011Q2

REPORT INFORMATION
  Report Type: 
  Country: None (occurrence: None)
  Receive Date: 20110406
  Receipt Date: 20110325
  Transmission Date: 20111010
  Serious: Yes (Hospitalization, Other)
  Sender: FDA-Public Use
  Company Number: US-CELGENEUS-163-21880-11033197

PATIENT
  Sex: Male

DRUGS (2)
  1. REVLIMID [Suspect]
     Indication: AMYLOIDOSIS
     Dosage: 15 MILLIGRAM
     Route: 048
     Dates: start: 20110117
  2. VELCADE [Concomitant]
     Indication: AMYLOIDOSIS
     Dosage: 2.6 MILLIGRAM
     Route: 051
     Dates: start: 20110118

REACTIONS (2)
  - PULMONARY OEDEMA [None]
  - LEUKOCYTOSIS [None]
